FAERS Safety Report 9742696 (Version 2)
Quarter: 2013Q4

REPORT INFORMATION
  Report Type: Spontaneous
  Country: US (occurrence: US)
  Receive Date: 20131210
  Receipt Date: 20131210
  Transmission Date: 20140711
  Serious: No
  Sender: FDA-Public Use
  Company Number: US-GILEAD-2009-0025299

PATIENT
  Sex: Female
  Weight: 53.52 kg

DRUGS (10)
  1. LETAIRIS [Suspect]
     Indication: PULMONARY ARTERIAL HYPERTENSION
     Route: 048
     Dates: start: 20091029, end: 20091119
  2. COMBIVENT [Concomitant]
  3. FLEXERIL [Concomitant]
  4. LASIX [Concomitant]
  5. VICODIN [Concomitant]
  6. PRILOSEC [Concomitant]
  7. WARFARIN [Concomitant]
  8. QVAR [Concomitant]
  9. VIAGRA [Concomitant]
  10. DIGOXIN [Concomitant]

REACTIONS (5)
  - Somnolence [Unknown]
  - Swelling [Unknown]
  - Rash [Unknown]
  - Pruritus [Unknown]
  - Erythema [Unknown]
